FAERS Safety Report 7249698-3 (Version None)
Quarter: 2011Q1

REPORT INFORMATION
  Report Type: 
  Country: None (occurrence: None)
  Receive Date: 20110128
  Receipt Date: 20110119
  Transmission Date: 20110831
  Serious: Yes (Life-Threatening, Hospitalization)
  Sender: FDA-Public Use
  Company Number: BE-SANOFI-AVENTIS-2010SA077305

PATIENT
  Age: 64 Year
  Sex: Male
  Weight: 75.5 kg

DRUGS (2)
  1. ELOXATIN [Suspect]
     Dates: start: 20101021, end: 20101021
  2. ELOXATIN [Suspect]
     Route: 042
     Dates: start: 20100913, end: 20100913

REACTIONS (1)
  - CARDIAC FAILURE [None]
